FAERS Safety Report 5657756-X (Version None)
Quarter: 2008Q1

REPORT INFORMATION
  Report Type: 
  Country: None (occurrence: None)
  Receive Date: 20080305
  Receipt Date: 20080220
  Transmission Date: 20080703
  Serious: Yes (Other)
  Sender: FDA-Public Use
  Company Number: 18441

PATIENT
  Age: 5 Year
  Sex: Female

DRUGS (11)
  1. CARBOPLATIN [Suspect]
     Indication: EPENDYMOMA
     Dosage: 500 MG/M2 QD
  2. ETOPOSIDE [Suspect]
     Indication: EPENDYMOMA
     Dosage: 250 MG/M2 QD
  3. THIOTEPA [Suspect]
     Indication: EPENDYMOMA
     Dosage: 300 MG/M2 QD
  4. NEUPOGEN [Concomitant]
  5. FLUCONAZOLE [Concomitant]
  6. SEPTRIN [Concomitant]
  7. ACYCLOVIR [Concomitant]
  8. CISPLATIN [Concomitant]
  9. CCNU [Concomitant]
  10. VINCRISTINE [Concomitant]
  11. RADIOTHERAPY [Concomitant]

REACTIONS (9)
  - BACILLUS INFECTION [None]
  - CLOSTRIDIUM DIFFICILE COLITIS [None]
  - FEBRILE NEUTROPENIA [None]
  - HEPATOTOXICITY [None]
  - MUCOSAL INFLAMMATION [None]
  - NEPHROPATHY TOXIC [None]
  - SEPSIS [None]
  - STEM CELL TRANSPLANT [None]
  - VENOOCCLUSIVE LIVER DISEASE [None]
